FAERS Safety Report 6274339-1 (Version None)
Quarter: 2009Q3

REPORT INFORMATION
  Report Type: 
  Country: None (occurrence: None)
  Receive Date: 20090720
  Receipt Date: 20090713
  Transmission Date: 20100115
  Serious: Yes (Other)
  Sender: FDA-Public Use
  Company Number: US-GENENTECH-286875

PATIENT
  Sex: Female

DRUGS (1)
  1. TNKASE [Suspect]
     Indication: ISCHAEMIC STROKE
     Dosage: UNK

REACTIONS (1)
  - ISCHAEMIC STROKE [None]
